FAERS Safety Report 14957260 (Version 2)
Quarter: 2018Q2

REPORT INFORMATION
  Report Type: Spontaneous
  Country: US (occurrence: US)
  Receive Date: 20180531
  Receipt Date: 20180621
  Transmission Date: 20180711
  Serious: Yes (Hospitalization, Other)
  Sender: FDA-Public Use
  Company Number: US-PFIZER INC-2018214793

PATIENT
  Age: 64 Year
  Sex: Male
  Weight: 108.8 kg

DRUGS (5)
  1. XANAX [Suspect]
     Active Substance: ALPRAZOLAM
     Indication: ANXIETY DISORDER
     Dosage: 2 MG, 4X/DAY (4 TABLETS A DAY)
     Route: 048
  2. METOPROLOL. [Concomitant]
     Active Substance: METOPROLOL
     Dosage: 25 MG, 1X/DAY
  3. XANAX [Suspect]
     Active Substance: ALPRAZOLAM
     Indication: PANIC ATTACK
  4. XANAX [Suspect]
     Active Substance: ALPRAZOLAM
     Indication: DEPRESSION
  5. FLUOXETINE [Concomitant]
     Active Substance: FLUOXETINE HYDROCHLORIDE
     Indication: DEPRESSION
     Dosage: 60 MG, 1X/DAY
     Dates: start: 1996

REACTIONS (5)
  - Upper limb fracture [Recovered/Resolved with Sequelae]
  - Balance disorder [Recovering/Resolving]
  - Fall [Recovered/Resolved with Sequelae]
  - Memory impairment [Recovered/Resolved]
  - Parkinson^s disease [Recovering/Resolving]

NARRATIVE: CASE EVENT DATE: 2015
